FAERS Safety Report 10289554 (Version 5)
Quarter: 2016Q4

REPORT INFORMATION
  Report Type: Report from Study
  Country: GB (occurrence: GB)
  Receive Date: 20140710
  Receipt Date: 20161216
  Transmission Date: 20170206
  Serious: Yes (Death, Hospitalization, Other)
  Sender: FDA-Public Use
  Company Number: GB-CELGENEUS-167-20785-14064596

PATIENT
  Age: 69 Year
  Sex: Male

DRUGS (3)
  1. THALIDOMIDE [Suspect]
     Active Substance: THALIDOMIDE
     Indication: PLASMA CELL MYELOMA
     Dosage: 50MG
     Route: 048
     Dates: start: 20140620
  2. CYCLOPHOSPHAMIDE. [Suspect]
     Active Substance: CYCLOPHOSPHAMIDE
     Indication: PLASMA CELL MYELOMA
     Dosage: 500MG
     Route: 048
     Dates: start: 20140620
  3. DEXAMETHASONE ORAL [Suspect]
     Active Substance: DEXAMETHASONE
     Indication: PLASMA CELL MYELOMA
     Dosage: 20MG
     Route: 048
     Dates: start: 20140620

REACTIONS (3)
  - Hypoalbuminaemia [Fatal]
  - Oedema peripheral [Fatal]
  - Gout [Recovered/Resolved]

NARRATIVE: CASE EVENT DATE: 20140621
